FAERS Safety Report 13519945 (Version 2)
Quarter: 2017Q2

REPORT INFORMATION
  Report Type: Spontaneous
  Country: US (occurrence: US)
  Receive Date: 20170506
  Receipt Date: 20170506
  Transmission Date: 20170830
  Serious: Yes (Other)
  Sender: FDA-Public Use
  Company Number: US-BRISTOL-MYERS SQUIBB COMPANY-BMS-2017-037834

PATIENT

DRUGS (1)
  1. NIVOLUMAB [Suspect]
     Active Substance: NIVOLUMAB
     Indication: MALIGNANT MELANOMA
     Dosage: 10 MG/KG, UNK
     Route: 065

REACTIONS (9)
  - Alanine aminotransferase increased [Unknown]
  - Pneumonitis [Unknown]
  - Pruritus [Unknown]
  - Aspartate aminotransferase increased [Unknown]
  - Vitiligo [Unknown]
  - Diarrhoea [Unknown]
  - Rash [Unknown]
  - Infusion related reaction [Unknown]
  - Blood thyroid stimulating hormone increased [Unknown]
